FAERS Safety Report 23455660 (Version 1)
Quarter: 2024Q1

REPORT INFORMATION
  Report Type: Spontaneous
  Country: US (occurrence: None)
  Receive Date: 20240129
  Receipt Date: 20240129
  Transmission Date: 20240409
  Serious: Yes (Disabling, Other)
  Sender: FDA-Public Use
  Company Number: None

PATIENT
  Age: 40 Year
  Sex: Female
  Weight: 51.3 kg

DRUGS (15)
  1. CIPROFLOXACIN [Suspect]
     Active Substance: CIPROFLOXACIN
     Indication: Urinary tract infection
     Dosage: OTHER QUANTITY : 1 TABLET(S);?FREQUENCY : TWICE A DAY;?
     Route: 048
     Dates: start: 20170313, end: 20230316
  2. GABAPENTIN [Concomitant]
     Active Substance: GABAPENTIN
  3. CYMBALTA [Concomitant]
     Active Substance: DULOXETINE HYDROCHLORIDE
  4. NORTRIPTYLINE [Concomitant]
     Active Substance: NORTRIPTYLINE
  5. cyclobenzarpine [Concomitant]
  6. sleeping tablets [Concomitant]
  7. FISH OIL [Concomitant]
     Active Substance: FISH OIL
  8. OMEGA 3 [Concomitant]
     Active Substance: CAPSAICIN
  9. MAGNESIUM [Concomitant]
     Active Substance: MAGNESIUM
  10. VITAMIN B COMPLEX [Concomitant]
     Active Substance: CYANOCOBALAMIN\DEXPANTHENOL\NIACINAMIDE\PYRIDOXINE HYDROCHLORIDE\RIBOFLAVIN 5^-PHOSPHATE SODIUM\THIA
  11. VITAMIN B12 [Concomitant]
     Active Substance: CYANOCOBALAMIN
  12. CALCIUM [Concomitant]
     Active Substance: CALCIUM
  13. VITAMIN C [Concomitant]
     Active Substance: ASCORBIC ACID
  14. women^s multivitamin [Concomitant]
  15. VITAMIN D [Concomitant]
     Active Substance: VITAMIN D NOS

REACTIONS (18)
  - Hypersensitivity [None]
  - Peripheral sensory neuropathy [None]
  - Confusional state [None]
  - Gait inability [None]
  - Tendonitis [None]
  - Amnesia [None]
  - Fatigue [None]
  - Dyspnoea [None]
  - Urinary incontinence [None]
  - Pain [None]
  - Dysgeusia [None]
  - Hypophagia [None]
  - Hypoacusis [None]
  - Panic attack [None]
  - Insomnia [None]
  - Fatigue [None]
  - Abdominal pain [None]
  - Coordination abnormal [None]

NARRATIVE: CASE EVENT DATE: 20170313
